FAERS Safety Report 8999889 (Version 2)
Quarter: 2013Q1

REPORT INFORMATION
  Report Type: Spontaneous
  Country: US (occurrence: US)
  Receive Date: 20130102
  Receipt Date: 20130110
  Transmission Date: 20140127
  Serious: No
  Sender: FDA-Public Use
  Company Number: US-VERTEX PHARMACEUTICALS INC.-2012-026784

PATIENT
  Age: 48 None
  Sex: Female

DRUGS (6)
  1. INCIVEK [Suspect]
     Indication: HEPATITIS C
     Dosage: 750 MG, TID
     Route: 048
     Dates: start: 20121116, end: 20121214
  2. INCIVEK [Suspect]
     Dosage: 750 MG, TID
     Route: 048
     Dates: start: 20121224, end: 201212
  3. COPEGUS [Suspect]
     Indication: HEPATITIS C
     Dosage: 3 DF, BID
     Dates: start: 20121116, end: 20121214
  4. COPEGUS [Suspect]
     Dosage: 3 DF, BID
     Dates: start: 20121224, end: 201212
  5. PEGASYS [Suspect]
     Indication: HEPATITIS C
     Dosage: UNK
     Dates: start: 20121116, end: 20121214
  6. PEGASYS [Suspect]
     Dosage: UNK
     Dates: start: 20121224, end: 201212

REACTIONS (2)
  - Impaired healing [Not Recovered/Not Resolved]
  - Blood potassium decreased [Unknown]
